FAERS Safety Report 4689781-X (Version None)
Quarter: 2005Q2

REPORT INFORMATION
  Report Type: 
  Country: None (occurrence: None)
  Receive Date: 20050608
  Receipt Date: 20050406
  Transmission Date: 20051028
  Serious: No
  Sender: FDA-Public Use
  Company Number: 2005-BP-05706BP

PATIENT
  Age: 80 Year
  Sex: Female

DRUGS (2)
  1. SPIRIVA [Suspect]
     Indication: CHRONIC OBSTRUCTIVE PULMONARY DISEASE
     Dosage: NR (18 MCG), IH
     Route: 055
     Dates: start: 20040101
  2. OXYGEN(OXYGEN) [Concomitant]

REACTIONS (2)
  - CONVULSION [None]
  - INFECTION [None]
